FAERS Safety Report 9899014 (Version 3)
Quarter: 2014Q1

REPORT INFORMATION
  Report Type: Report from Study
  Country: RO (occurrence: RO)
  Receive Date: 20140214
  Receipt Date: 20140221
  Transmission Date: 20141002
  Serious: Yes (Hospitalization)
  Sender: FDA-Public Use
  Company Number: RO-GLAXOSMITHKLINE-Z0022094A

PATIENT
  Age: 67 Year
  Sex: Female
  Weight: 55 kg

DRUGS (7)
  1. UMECLIDINIUM [Suspect]
     Indication: CHRONIC OBSTRUCTIVE PULMONARY DISEASE
     Dosage: 125MCG PER DAY
     Route: 055
     Dates: start: 20131219, end: 20140204
  2. FLUTICASONE FUROATE + VILANTEROL TRIFENATATE [Suspect]
     Indication: CHRONIC OBSTRUCTIVE PULMONARY DISEASE
     Route: 055
     Dates: start: 20131121, end: 20140204
  3. SALINE 0.9% [Concomitant]
     Indication: CHRONIC OBSTRUCTIVE PULMONARY DISEASE
     Dosage: 500ML TWICE PER DAY
     Route: 042
     Dates: start: 20140203, end: 20140206
  4. ALGOCALMIN [Concomitant]
     Indication: CHRONIC OBSTRUCTIVE PULMONARY DISEASE
     Dosage: 1000MG TWICE PER DAY
     Route: 030
     Dates: start: 20140204, end: 20140206
  5. GLUCOSE 5 % [Concomitant]
     Indication: CHRONIC OBSTRUCTIVE PULMONARY DISEASE
     Dosage: 500ML TWICE PER DAY
     Route: 042
     Dates: start: 20140204
  6. FUROSEMID [Concomitant]
     Indication: HYPERTENSION
     Dosage: 20MG PER DAY
     Route: 048
     Dates: start: 20140204, end: 20140213
  7. RANITIDINE [Concomitant]
     Indication: PROPHYLAXIS
     Dosage: 50MG PER DAY
     Route: 042
     Dates: start: 20140204, end: 20140213

REACTIONS (1)
  - Chronic obstructive pulmonary disease [Recovered/Resolved]
